FAERS Safety Report 5369276-0 (Version None)
Quarter: 2007Q2

REPORT INFORMATION
  Report Type: 
  Country: None (occurrence: None)
  Receive Date: 20070625
  Receipt Date: 20070302
  Transmission Date: 20071010
  Serious: No
  Sender: FDA-Public Use
  Company Number: US-ASTRAZENECA-2007UW04008

PATIENT
  Age: 40 Year
  Sex: Female
  Weight: 73.9 kg

DRUGS (6)
  1. CRESTOR [Suspect]
     Indication: BLOOD CHOLESTEROL INCREASED
     Route: 048
  2. ESTRODIOL [Concomitant]
  3. PREVACID [Concomitant]
  4. VOLTAREN [Concomitant]
  5. REGLAN [Concomitant]
  6. BIOTIN [Concomitant]

REACTIONS (2)
  - ALOPECIA [None]
  - FATIGUE [None]
